FAERS Safety Report 9265801 (Version 4)
Quarter: 2013Q3

REPORT INFORMATION
  Report Type: Report from Study
  Country: US (occurrence: US)
  Receive Date: 20130501
  Receipt Date: 20130918
  Transmission Date: 20140515
  Serious: Yes (Death, Hospitalization)
  Sender: FDA-Public Use
  Company Number: US-ACTELION-A-US2013-82273

PATIENT
  Age: 60 Year
  Sex: Female

DRUGS (3)
  1. VELETRI [Suspect]
     Indication: PULMONARY ARTERIAL HYPERTENSION
     Dosage: 24 NG/KG, PER MIN
     Route: 042
     Dates: start: 20130524
  2. VELETRI [Suspect]
     Dosage: 25 NG/KG, PER MIN
     Route: 042
     Dates: start: 20120823
  3. LETAIRIS [Concomitant]

REACTIONS (6)
  - Right ventricular failure [Fatal]
  - Catheterisation cardiac [Unknown]
  - Pulmonary arterial hypertension [Unknown]
  - Condition aggravated [Unknown]
  - Ascites [Unknown]
  - Dyspnoea [Unknown]
